FAERS Safety Report 10157633 (Version 2)
Quarter: 2014Q2

REPORT INFORMATION
  Report Type: Report from Study
  Country: AU (occurrence: AU)
  Receive Date: 20140507
  Receipt Date: 20140507
  Transmission Date: 20141212
  Serious: Yes (Death)
  Sender: FDA-Public Use
  Company Number: AU-CELGENEUS-008-10004-11113418

PATIENT
  Age: 30 Year
  Sex: Female
  Weight: 120 kg

DRUGS (2)
  1. CC-10004 [Suspect]
     Indication: PSORIASIS
     Dosage: 60 MILLIGRAM
     Route: 048
     Dates: start: 20110803, end: 20111114
  2. LEXAPRO [Concomitant]
     Indication: DEPRESSION
     Dosage: 10 MILLIGRAM
     Route: 048
     Dates: start: 20010601

REACTIONS (1)
  - Cardiac failure [Fatal]
